FAERS Safety Report 26182282 (Version 2)
Quarter: 2025Q4

REPORT INFORMATION
  Report Type: Spontaneous
  Country: US (occurrence: US)
  Receive Date: 20251221
  Receipt Date: 20251230
  Transmission Date: 20260117
  Serious: No
  Sender: ELI LILLY AND COMPANY
  Company Number: US-ELI_LILLY_AND_COMPANY-US202512017658

PATIENT
  Age: 51 Year
  Sex: Female

DRUGS (2)
  1. ZEPBOUND [Suspect]
     Active Substance: TIRZEPATIDE
     Indication: Weight control
     Dosage: 2.5 MG, UNKNOWN
     Route: 065
     Dates: start: 20251130
  2. ZEPBOUND [Suspect]
     Active Substance: TIRZEPATIDE
     Indication: Intracranial pressure increased
     Dosage: 2.5 MG, UNKNOWN
     Route: 058
     Dates: end: 20251207

REACTIONS (11)
  - Dysphagia [Not Recovered/Not Resolved]
  - Tongue discomfort [Unknown]
  - Neck pain [Unknown]
  - Urticaria [Not Recovered/Not Resolved]
  - Chest discomfort [Unknown]
  - Rash [Unknown]
  - Injection site pruritus [Unknown]
  - Lip swelling [Not Recovered/Not Resolved]
  - Abdominal distension [Unknown]
  - Abdominal pain upper [Unknown]
  - Nausea [Unknown]

NARRATIVE: CASE EVENT DATE: 20251209
